FAERS Safety Report 12990696 (Version 2)
Quarter: 2017Q2

REPORT INFORMATION
  Report Type: Spontaneous
  Country: US (occurrence: US)
  Receive Date: 20161201
  Receipt Date: 20170607
  Transmission Date: 20170830
  Serious: No
  Sender: FDA-Public Use
  Company Number: US-PFIZER INC-2016445183

PATIENT
  Age: 57 Year
  Sex: Female
  Weight: 98.43 kg

DRUGS (37)
  1. LIORESAL [Concomitant]
     Active Substance: BACLOFEN
     Indication: BACK PAIN
  2. ALEVE [Concomitant]
     Active Substance: NAPROXEN SODIUM
     Dosage: 220 MG, DAILY
     Route: 048
  3. LYRICA [Suspect]
     Active Substance: PREGABALIN
     Indication: MIGRAINE WITHOUT AURA
     Dosage: 100 MG, 3X/DAY
     Route: 048
     Dates: start: 20161101
  4. CALAN [Concomitant]
     Active Substance: VERAPAMIL HYDROCHLORIDE
     Indication: MIGRAINE
  5. ISOPTIN [Concomitant]
     Active Substance: VERAPAMIL HYDROCHLORIDE
     Indication: MIGRAINE
  6. LYRICA [Suspect]
     Active Substance: PREGABALIN
     Indication: POLYNEUROPATHY IDIOPATHIC PROGRESSIVE
     Dosage: UNK
  7. LYRICA [Suspect]
     Active Substance: PREGABALIN
     Dosage: UNK
  8. PAMELOR [Concomitant]
     Active Substance: NORTRIPTYLINE HYDROCHLORIDE
     Indication: MIGRAINE WITHOUT AURA
     Dosage: 10 MG, DAILY (AT BEDTIME)
     Route: 048
  9. ECOTRIN [Concomitant]
     Active Substance: ASPIRIN
     Indication: MIGRAINE WITH AURA
  10. NASONEX [Concomitant]
     Active Substance: MOMETASONE FUROATE
     Dosage: 4 DF, DAILY (50 MCG/ACT, 2 SPRAYS),
     Route: 045
  11. VERELAN [Concomitant]
     Active Substance: VERAPAMIL HYDROCHLORIDE
     Indication: MIGRAINE WITH AURA
  12. CALAN [Concomitant]
     Active Substance: VERAPAMIL HYDROCHLORIDE
     Indication: HYPERTENSION
     Dosage: 120 MG, 2X/DAY
     Route: 048
  13. LEVOTHYROXINE. [Concomitant]
     Active Substance: LEVOTHYROXINE
     Indication: HYPOTHYROIDISM
     Dosage: 50 UG, DAILY
     Route: 048
  14. ECOTRIN [Concomitant]
     Active Substance: ASPIRIN
     Indication: NEUROPATHY PERIPHERAL
     Dosage: 81 MG, DAILY
     Route: 048
  15. MAXZIDE [Concomitant]
     Active Substance: HYDROCHLOROTHIAZIDE\TRIAMTERENE
     Indication: ESSENTIAL HYPERTENSION
     Dosage: 1 DF, UNK [HYDROCHLOROTHIAZIDE 25 MG][ TRIAMTERENE 37.5 MG]
     Route: 048
  16. LYRICA [Suspect]
     Active Substance: PREGABALIN
     Indication: TETHERED CORD SYNDROME
     Dosage: 100 MG, 3X/DAY (DAILY)
     Route: 048
     Dates: start: 20160902
  17. LUNESTA [Concomitant]
     Active Substance: ESZOPICLONE
     Dosage: 3 MG, AS NEEDED (AT  BED TIME)
     Route: 048
  18. HEXAZIDE [Concomitant]
     Active Substance: HYDROCHLOROTHIAZIDE
     Dosage: 1 DF, UNK  (TRIAMTERENE 37.6MG-HYDROCHLOROTHIAZIDE 25 MG)
     Route: 048
  19. PROAIR HFA [Concomitant]
     Active Substance: ALBUTEROL SULFATE
     Dosage: INHALE 2 PUFFS BY MOUTH EVERY 4 HOURS )
     Route: 048
  20. VERELAN [Concomitant]
     Active Substance: VERAPAMIL HYDROCHLORIDE
     Indication: ESSENTIAL HYPERTENSION
     Dosage: 240 MG, 2X/DAY (TAKE 1 CAP BY MOUTH TWICE DAILY WITH BREAKFAST AND DINNER)
     Route: 048
  21. PAMELOR [Concomitant]
     Active Substance: NORTRIPTYLINE HYDROCHLORIDE
     Indication: POLYNEUROPATHY IDIOPATHIC PROGRESSIVE
     Dosage: 10 MG, DAILY (AT BEDTIME)
     Route: 048
  22. ISOPTIN [Concomitant]
     Active Substance: VERAPAMIL HYDROCHLORIDE
     Indication: HYPERTENSION
     Dosage: 120 MG, 2X/DAY
     Route: 048
  23. SINGULAIR [Concomitant]
     Active Substance: MONTELUKAST SODIUM
     Indication: RHINITIS ALLERGIC
     Dosage: 10 MG, DAILY (EVERY EVENING)
     Route: 048
  24. ECOTRIN [Concomitant]
     Active Substance: ASPIRIN
     Indication: VESTIBULAR MIGRAINE
  25. DULERA [Concomitant]
     Active Substance: FORMOTEROL FUMARATE DIHYDRATE\MOMETASONE FUROATE
     Dosage: 2 DF, 2X/DAY MONOTASONE 100MCG- FORMOTEROL 5MCG,
     Route: 048
  26. RIBOFLAVIN [Concomitant]
     Active Substance: RIBOFLAVIN
     Dosage: 400 MG, 4X/DAY (DAILY )
     Route: 048
  27. ANTIVERT [Concomitant]
     Active Substance: MECLIZINE HYDROCHLORIDE
     Dosage: 25 MG, AS NEEDED
     Route: 048
  28. LYRICA [Suspect]
     Active Substance: PREGABALIN
     Indication: MIGRAINE
     Dosage: 100 MG, 3X/DAY
  29. NEURONTIN [Concomitant]
     Active Substance: GABAPENTIN
     Dosage: 100 MG, DAILY (AT BEDTIME)
     Route: 048
  30. ALLEGRA ALLERGY [Concomitant]
     Active Substance: FEXOFENADINE HYDROCHLORIDE
     Dosage: 180 MG, DAILY
     Route: 048
  31. VITAMIN D3 [Concomitant]
     Active Substance: CHOLECALCIFEROL
     Dosage: 2000 IU, DAILY
     Route: 048
  32. LYRICA [Suspect]
     Active Substance: PREGABALIN
     Indication: MIGRAINE WITH AURA
     Dosage: 50 MG, 3X/DAY
     Dates: start: 201609
  33. LYRICA [Suspect]
     Active Substance: PREGABALIN
     Dosage: 100 MG, 2X/DAY
     Route: 048
     Dates: start: 20170530
  34. LIORESAL [Concomitant]
     Active Substance: BACLOFEN
     Indication: MUSCLE SPASMS
     Dosage: 0.5 TAB, AS NEEDED (AT BEDTIME)
     Route: 048
  35. ECOTRIN [Concomitant]
     Active Substance: ASPIRIN
     Indication: MIGRAINE WITHOUT AURA
  36. LUNESTA [Concomitant]
     Active Substance: ESZOPICLONE
     Indication: INSOMNIA
     Dosage: 3 MG, AS NEEDED (AT  BED TIME)
     Route: 048
  37. TRILYTE [Concomitant]
     Active Substance: POLYETHYLENE GLYCOL 3350\POTASSIUM CHLORIDE\SODIUM BICARBONATE\SODIUM CHLORIDE
     Dosage: UNK (PEG 3350-KCL-NABCB-NACL 420G/4000ML)
     Route: 048

REACTIONS (4)
  - Weight increased [Unknown]
  - Increased appetite [Not Recovered/Not Resolved]
  - Hunger [Unknown]
  - Product use in unapproved indication [Unknown]

NARRATIVE: CASE EVENT DATE: 20160902
